APPROVED DRUG PRODUCT: CEFOXITIN
Active Ingredient: CEFOXITIN SODIUM
Strength: EQ 10GM BASE/VIAL
Dosage Form/Route: INJECTABLE;INJECTION
Application: A065011 | Product #001
Applicant: FRESENIUS KABI USA LLC
Approved: Jul 3, 2000 | RLD: No | RS: No | Type: DISCN